FAERS Safety Report 24307323 (Version 6)
Quarter: 2024Q4

REPORT INFORMATION
  Report Type: Report from Study
  Country: US (occurrence: US)
  Receive Date: 20240911
  Receipt Date: 20241008
  Transmission Date: 20250115
  Serious: Yes (Other)
  Sender: GILEAD
  Company Number: US-GILEAD-2024-0687088

PATIENT
  Age: 66 Year
  Sex: Male

DRUGS (2)
  1. SOFOSBUVIR\VELPATASVIR [Suspect]
     Active Substance: SOFOSBUVIR\VELPATASVIR
     Indication: Hepatitis C
     Dosage: 1 DOSAGE FORM, QD
     Route: 048
     Dates: start: 20240806
  2. AMLODIPINE [Concomitant]
     Active Substance: AMLODIPINE BESYLATE
     Indication: Product used for unknown indication
     Dosage: UNK
     Route: 065

REACTIONS (6)
  - Syncope [Not Recovered/Not Resolved]
  - Blindness transient [Not Recovered/Not Resolved]
  - Loss of consciousness [Unknown]
  - Rash [Unknown]
  - Vomiting [Unknown]
  - Fall [Not Recovered/Not Resolved]
